FAERS Safety Report 12654159 (Version 1)
Quarter: 2016Q3

REPORT INFORMATION
  Report Type: Spontaneous
  Country: CO (occurrence: CO)
  Receive Date: 20160816
  Receipt Date: 20160816
  Transmission Date: 20161109
  Serious: Yes (Death, Hospitalization, Other)
  Sender: FDA-Public Use
  Company Number: CO-ALEXION PHARMACEUTICALS INC-A201605915

PATIENT
  Age: 15 Year
  Sex: Male
  Weight: 41 kg

DRUGS (7)
  1. MINOXIDIL. [Concomitant]
     Active Substance: MINOXIDIL
     Indication: BLOOD PRESSURE INCREASED
     Dosage: 10 MG, UNK
     Route: 048
     Dates: start: 20160713
  2. ENALAPRIL [Concomitant]
     Active Substance: ENALAPRIL
     Indication: BLOOD PRESSURE INCREASED
     Dosage: 20 MG, UNK
     Route: 048
     Dates: start: 20160713
  3. SOLIRIS [Suspect]
     Active Substance: ECULIZUMAB
     Indication: HAEMOLYTIC URAEMIC SYNDROME
     Dosage: 900 MG, QW
     Route: 042
     Dates: start: 20160611, end: 20160702
  4. SOLIRIS [Suspect]
     Active Substance: ECULIZUMAB
     Dosage: 1200 MG, Q2W
     Route: 042
     Dates: start: 20160713, end: 20160726
  5. METOPROLOL. [Concomitant]
     Active Substance: METOPROLOL
     Indication: BLOOD PRESSURE INCREASED
     Dosage: 50 MG, UNK
     Route: 048
     Dates: start: 20160713
  6. AMLODIPINE [Concomitant]
     Active Substance: AMLODIPINE BESYLATE
     Indication: BLOOD PRESSURE INCREASED
     Dosage: 10 MG, UNK
     Route: 048
     Dates: start: 20160713
  7. CLONIDINE. [Concomitant]
     Active Substance: CLONIDINE
     Indication: BLOOD PRESSURE INCREASED
     Dosage: 0.5 MG, UNK
     Route: 048
     Dates: start: 20160713

REACTIONS (3)
  - Generalised tonic-clonic seizure [Unknown]
  - Hypertensive crisis [Unknown]
  - Cerebral haemorrhage [Fatal]

NARRATIVE: CASE EVENT DATE: 20160805
